FAERS Safety Report 17376344 (Version 1)
Quarter: 2020Q1

REPORT INFORMATION
  Report Type: Spontaneous
  Country: US (occurrence: US)
  Receive Date: 20200122
  Receipt Date: 20200122
  Transmission Date: 20200409
  Serious: Yes (Other)
  Sender: FDA-Public Use
  Company Number: None

PATIENT
  Age: 74 Year
  Sex: Female
  Weight: 68.04 kg

DRUGS (4)
  1. FLUOXETINE [Concomitant]
     Active Substance: FLUOXETINE HYDROCHLORIDE
  2. ALPRAZOLAM 1.0MG TABLET PUREPAC PH [Suspect]
     Active Substance: ALPRAZOLAM
     Indication: PANIC DISORDER
     Dosage: ?          QUANTITY:1 PILL;?
     Route: 048
     Dates: start: 20191202, end: 20200106
  3. MULTIVITAMIN [Concomitant]
     Active Substance: VITAMINS
  4. CALCIUM WITH VITAMIN D [Concomitant]
     Active Substance: CALCIUM\VITAMIN D

REACTIONS (8)
  - Product substitution issue [None]
  - Insomnia [None]
  - Cold sweat [None]
  - Paraesthesia [None]
  - Withdrawal syndrome [None]
  - Panic attack [None]
  - Decreased appetite [None]
  - Abdominal pain [None]

NARRATIVE: CASE EVENT DATE: 20191202
